FAERS Safety Report 8890175 (Version 4)
Quarter: 2014Q1

REPORT INFORMATION
  Report Type: Report from Study
  Country: JP (occurrence: JP)
  Receive Date: 20121107
  Receipt Date: 20140227
  Transmission Date: 20141002
  Serious: Yes (Other)
  Sender: FDA-Public Use
  Company Number: JP-JNJFOC-20121008471

PATIENT
  Age: 80 Year
  Sex: Female
  Weight: 51 kg

DRUGS (13)
  1. REMINYL [Suspect]
     Indication: DEMENTIA ALZHEIMER^S TYPE
     Route: 048
     Dates: start: 20120714
  2. REMINYL [Suspect]
     Indication: DEMENTIA ALZHEIMER^S TYPE
     Route: 048
     Dates: start: 20120616, end: 20120713
  3. LIPITOR [Concomitant]
     Indication: HYPERCHOLESTEROLAEMIA
     Route: 048
     Dates: start: 20120626
  4. BAYASPIRIN [Concomitant]
     Indication: CEREBRAL INFARCTION
     Route: 048
  5. HUMALOG MIX [Concomitant]
     Indication: DIABETES MELLITUS
     Route: 058
     Dates: end: 20120716
  6. HUMALOG MIX [Concomitant]
     Indication: DIABETES MELLITUS
     Route: 058
     Dates: start: 20120717
  7. AMLODIPINE  BESILATE [Concomitant]
     Indication: ESSENTIAL HYPERTENSION
     Route: 048
  8. CRESTOR [Concomitant]
     Indication: HYPERCHOLESTEROLAEMIA
     Route: 048
     Dates: end: 20120625
  9. ALEVIATIN [Concomitant]
     Indication: EPILEPSY
     Route: 048
     Dates: end: 20120722
  10. AMOBAN [Concomitant]
     Indication: INSOMNIA
     Route: 048
  11. FUROSEMIDE [Concomitant]
     Indication: ESSENTIAL HYPERTENSION
     Route: 048
  12. MAGMITT [Concomitant]
     Indication: CONSTIPATION
     Route: 048
  13. SODIUM VALPROATE [Concomitant]
     Indication: EPILEPSY
     Route: 048
     Dates: start: 20120723

REACTIONS (3)
  - Diabetic nephropathy [Recovering/Resolving]
  - Renal disorder [Unknown]
  - Cystitis bacterial [Recovered/Resolved]
